FAERS Safety Report 25668985 (Version 2)
Quarter: 2025Q4

REPORT INFORMATION
  Report Type: Spontaneous
  Country: US (occurrence: US)
  Receive Date: 20250812
  Receipt Date: 20251023
  Transmission Date: 20260118
  Serious: No
  Sender: BRISTOL-MYERS SQUIBB COMPANY
  Company Number: US-BRISTOL-MYERS SQUIBB COMPANY-2025-111492

PATIENT
  Age: 89 Year
  Sex: Male

DRUGS (2)
  1. LENALIDOMIDE [Suspect]
     Active Substance: LENALIDOMIDE
     Indication: Pancreatic disorder
  2. LENALIDOMIDE [Suspect]
     Active Substance: LENALIDOMIDE

REACTIONS (2)
  - Full blood count abnormal [Recovered/Resolved]
  - Off label use [Unknown]
